FAERS Safety Report 6769776-2 (Version None)
Quarter: 2010Q2

REPORT INFORMATION
  Report Type: 
  Country: None (occurrence: None)
  Receive Date: 20100615
  Receipt Date: 20100603
  Transmission Date: 20101027
  Serious: Yes (Other)
  Sender: FDA-Public Use
  Company Number: US-BAYER-201016212BCC

PATIENT
  Age: 25 Year
  Sex: Female
  Weight: 63 kg

DRUGS (10)
  1. ASPIRIN [Suspect]
     Indication: ARTHRALGIA
     Route: 048
     Dates: start: 19560101, end: 19650101
  2. CITRACAL PETITES [Suspect]
     Indication: OSTEOPOROSIS
     Dosage: TOTAL DAILY DOSE: 3 DF  UNIT DOSE: 1 DF
     Route: 048
     Dates: start: 20100526
  3. PANTOPRAZOLE [Concomitant]
     Route: 065
  4. PAMOXOFIN [Concomitant]
     Route: 065
  5. ACETAMINOPHEN [Concomitant]
     Route: 065
  6. EQUALINE ASPIRIN [Concomitant]
     Route: 065
  7. VITAMIN D [Concomitant]
     Route: 065
  8. IRON [Concomitant]
     Route: 065
  9. QVAR 40 [Concomitant]
     Route: 065
  10. PROAIR HFA [Concomitant]
     Route: 065

REACTIONS (2)
  - FOREIGN BODY [None]
  - ULCER [None]
